FAERS Safety Report 6610113-1 (Version None)
Quarter: 2010Q1

REPORT INFORMATION
  Report Type: 
  Country: None (occurrence: None)
  Receive Date: 20100302
  Receipt Date: 20100218
  Transmission Date: 20100710
  Serious: Yes (Other)
  Sender: FDA-Public Use
  Company Number: JP-PFIZER INC-2010025320

PATIENT
  Age: 84 Year
  Sex: Female

DRUGS (3)
  1. CELECOX [Suspect]
     Indication: BACK PAIN
     Dosage: 200 MG, UNK
     Route: 048
     Dates: start: 20100201, end: 20100201
  2. BUFFERIN C2 [Concomitant]
     Dosage: UNK
     Route: 048
  3. BISPHOSPHONATES [Concomitant]
     Route: 048

REACTIONS (1)
  - RETINAL VEIN THROMBOSIS [None]
